FAERS Safety Report 8449217 (Version 2)
Quarter: 2013Q1

REPORT INFORMATION
  Report Type: Report from Study
  Country: MX (occurrence: MX)
  Receive Date: 20120308
  Receipt Date: 20130218
  Transmission Date: 20140127
  Serious: Yes (Other)
  Sender: FDA-Public Use
  Company Number: PHHY2012MX017527

PATIENT
  Age: 54 Year
  Sex: Female

DRUGS (4)
  1. FORADIL [Suspect]
     Indication: ASTHMA
     Dosage: 1 DF, QD
     Dates: start: 20110405
  2. MIFLONIDE [Suspect]
     Indication: ASTHMA
     Dosage: 2 DF, DAILY
     Dates: start: 20110402
  3. PREDNISONE [Concomitant]
     Dosage: 1 DF, DAILY
     Dates: start: 20130205
  4. SALBUTAMOL [Concomitant]
     Dosage: 2 DF, UNK
     Dates: start: 20110402

REACTIONS (4)
  - Dyspnoea [Recovered/Resolved]
  - Tonsillar inflammation [Not Recovered/Not Resolved]
  - Influenza [Not Recovered/Not Resolved]
  - Cough [Not Recovered/Not Resolved]
